FAERS Safety Report 23716723 (Version 2)
Quarter: 2024Q4

REPORT INFORMATION
  Report Type: Report from Study
  Country: AU (occurrence: AU)
  Receive Date: 20240408
  Receipt Date: 20241003
  Transmission Date: 20250115
  Serious: Yes (Other)
  Sender: ROCHE
  Company Number: AU-ROCHE-3416848

PATIENT
  Age: 62 Year
  Sex: Female

DRUGS (14)
  1. OCRELIZUMAB [Suspect]
     Active Substance: OCRELIZUMAB
     Indication: Multiple sclerosis
     Dosage: C8 COMPLETED
     Route: 042
     Dates: start: 20210518
  2. OCRELIZUMAB [Suspect]
     Active Substance: OCRELIZUMAB
     Route: 042
  3. OCRELIZUMAB [Suspect]
     Active Substance: OCRELIZUMAB
     Route: 042
  4. CLOFEN [Concomitant]
  5. LIPEX [Concomitant]
  6. BETMIGA PROLONGED RELEASE TABLETS [Concomitant]
  7. LITHIUM CARBONATE [Concomitant]
     Active Substance: LITHIUM CARBONATE
  8. HIPREX [Concomitant]
     Active Substance: METHENAMINE HIPPURATE
     Route: 048
  9. UROREC CAPSULES [Concomitant]
  10. PANTOPRAZOLE [Concomitant]
     Active Substance: PANTOPRAZOLE
  11. FAMPYRA MODIFIED RELEASE TABLETS [Concomitant]
  12. GENTAMICIN [Concomitant]
     Active Substance: GENTAMICIN
     Dosage: DOSE: X 6 AMPS DAILY
  13. DESVENLAFAXINE [Concomitant]
     Active Substance: DESVENLAFAXINE
  14. TEGRETOL [Concomitant]
     Active Substance: CARBAMAZEPINE

REACTIONS (3)
  - Urinary tract infection [Recovering/Resolving]
  - Multiple sclerosis [Unknown]
  - Urinary tract infection [Recovering/Resolving]

NARRATIVE: CASE EVENT DATE: 20230904
